FAERS Safety Report 25369601 (Version 2)
Quarter: 2025Q2

REPORT INFORMATION
  Report Type: Spontaneous
  Country: US (occurrence: US)
  Receive Date: 20250528
  Receipt Date: 20250604
  Transmission Date: 20250717
  Serious: Yes (Congenital Anomaly)
  Sender: VERTEX
  Company Number: US-VERTEX PHARMACEUTICALS-2025-008621

PATIENT
  Age: 25 Year
  Sex: Male

DRUGS (1)
  1. TRIKAFTA [Suspect]
     Active Substance: ELEXACAFTOR\IVACAFTOR\TEZACAFTOR
     Indication: Cystic fibrosis
     Route: 048
     Dates: start: 202501

REACTIONS (5)
  - Hereditary non-polyposis colorectal cancer syndrome [Unknown]
  - Vomiting [Not Recovered/Not Resolved]
  - Stress [Unknown]
  - Dyspepsia [Not Recovered/Not Resolved]
  - Asthenia [Not Recovered/Not Resolved]

NARRATIVE: CASE EVENT DATE: 20250101
